FAERS Safety Report 6595921-8 (Version None)
Quarter: 2010Q1

REPORT INFORMATION
  Report Type: 
  Country: None (occurrence: None)
  Receive Date: 20100219
  Receipt Date: 20100219
  Transmission Date: 20100710
  Serious: Yes (Hospitalization)
  Sender: FDA-Public Use
  Company Number: None

PATIENT
  Age: 58 Year
  Sex: Female

DRUGS (9)
  1. MARINOL [Suspect]
     Dosage: 5 MG BID PO
     Route: 048
     Dates: start: 20100113
  2. ABRAXANE [Suspect]
     Indication: BREAST CANCER METASTATIC
     Dosage: 151 MG WEEKLY IV
     Route: 042
     Dates: start: 20091118, end: 20091223
  3. CISPLATIN [Concomitant]
  4. GEMZAR [Concomitant]
  5. ABROXANE [Concomitant]
  6. CYTOXAN [Concomitant]
  7. ADRIAMYCIN PFS [Concomitant]
  8. PROCRIT [Concomitant]
  9. LEUKINE [Concomitant]

REACTIONS (6)
  - CARDIOMYOPATHY [None]
  - CONFUSIONAL STATE [None]
  - DECREASED APPETITE [None]
  - MENTAL STATUS CHANGES [None]
  - WEIGHT DECREASED [None]
  - WHITE BLOOD CELL COUNT INCREASED [None]
